FAERS Safety Report 24299188 (Version 2)
Quarter: 2024Q3

REPORT INFORMATION
  Report Type: Spontaneous
  Country: US (occurrence: US)
  Receive Date: 20240909
  Receipt Date: 20240913
  Transmission Date: 20241016
  Serious: Yes (Other)
  Sender: PFIZER
  Company Number: US-PFIZER INC-202400251848

PATIENT
  Age: 41 Year

DRUGS (1)
  1. VELSIPITY [Suspect]
     Active Substance: ETRASIMOD ARGININE
     Dosage: 2 MG

REACTIONS (3)
  - Colitis ulcerative [Unknown]
  - Blood pressure abnormal [Unknown]
  - Hypersensitivity [Unknown]
